FAERS Safety Report 17611988 (Version 2)
Quarter: 2020Q2

REPORT INFORMATION
  Report Type: Spontaneous
  Country: EG (occurrence: EG)
  Receive Date: 20200401
  Receipt Date: 20200409
  Transmission Date: 20200713
  Serious: Yes (Death, Other)
  Sender: FDA-Public Use
  Company Number: EG-SHIRE-EG202011171

PATIENT

DRUGS (1)
  1. ELAPRASE [Suspect]
     Active Substance: IDURSULFASE
     Indication: MUCOPOLYSACCHARIDOSIS II
     Dosage: 2 DOSAGE FORM, OTHER (EVERY 2 WEEKS)
     Route: 042
     Dates: start: 20191013, end: 20200315

REACTIONS (4)
  - Choking [Fatal]
  - Cardiac arrest [Fatal]
  - Hepatomegaly [Unknown]
  - Snoring [Unknown]

NARRATIVE: CASE EVENT DATE: 20200321
